FAERS Safety Report 20581657 (Version 3)
Quarter: 2022Q1

REPORT INFORMATION
  Report Type: Spontaneous
  Country: US (occurrence: US)
  Receive Date: 20220311
  Receipt Date: 20220331
  Transmission Date: 20220423
  Serious: Yes (Other)
  Sender: FDA-Public Use
  Company Number: US-MLMSERVICE-20220301-3403337-1

PATIENT

DRUGS (3)
  1. CARBOPLATIN [Suspect]
     Active Substance: CARBOPLATIN
     Indication: Oesophageal squamous cell carcinoma
     Dosage: AREA UNDER THE CURVE(AUC 1), CYCLICAL
     Route: 065
  2. PACLITAXEL [Suspect]
     Active Substance: PACLITAXEL
     Indication: Oesophageal squamous cell carcinoma
     Dosage: 50 MILLIGRAM/SQ. METER, 2, CYCLICAL
     Route: 065
  3. PACLITAXEL [Suspect]
     Active Substance: PACLITAXEL
     Dosage: 25 MILLIGRAM/SQ. METER, 1, CYCLICAL
     Route: 065

REACTIONS (5)
  - Myalgia [Recovering/Resolving]
  - Stomatitis [Recovering/Resolving]
  - Infusion related reaction [Recovering/Resolving]
  - Vomiting [Recovering/Resolving]
  - Nausea [Recovering/Resolving]
